FAERS Safety Report 25756182 (Version 1)
Quarter: 2025Q3

REPORT INFORMATION
  Report Type: Spontaneous
  Country: US (occurrence: None)
  Receive Date: 20250903
  Receipt Date: 20250903
  Transmission Date: 20251021
  Serious: Yes (Hospitalization)
  Sender: FDA-CTU
  Company Number: None

PATIENT
  Age: 69 Year
  Sex: Female
  Weight: 74.4 kg

DRUGS (4)
  1. FEMARA [Suspect]
     Active Substance: LETROZOLE
  2. ONDANSETRON [Concomitant]
     Active Substance: ONDANSETRON
  3. LEVOTHYROXINE [Concomitant]
     Active Substance: LEVOTHYROXINE
  4. SUMATRIPTAN [Concomitant]
     Active Substance: SUMATRIPTAN

REACTIONS (1)
  - Dehydration [None]

NARRATIVE: CASE EVENT DATE: 20250825
